FAERS Safety Report 10035253 (Version 2)
Quarter: 2014Q1

REPORT INFORMATION
  Report Type: Spontaneous
  Country: DE (occurrence: DE)
  Receive Date: 20140325
  Receipt Date: 20140325
  Transmission Date: 20141002
  Serious: Yes (Hospitalization, Other)
  Sender: FDA-Public Use
  Company Number: 2013SP008509

PATIENT
  Age: 68 Year
  Sex: Female

DRUGS (2)
  1. METHOTREXATE [Suspect]
     Indication: PRODUCT USED FOR UNKNOWN INDICATION
  2. ENBREL [Suspect]
     Indication: PSORIASIS

REACTIONS (17)
  - Cardiac disorder [Unknown]
  - Cholecystitis [Unknown]
  - Abdominal pain upper [Unknown]
  - Nausea [Unknown]
  - Cholelithiasis [Unknown]
  - Cystitis [Unknown]
  - Vaginal infection [Unknown]
  - Genital infection fungal [Unknown]
  - Fungal infection [Unknown]
  - Pharyngitis [Unknown]
  - Cystitis noninfective [Unknown]
  - Urinary tract disorder [Unknown]
  - Abdominal distension [Unknown]
  - Nasopharyngitis [Unknown]
  - Dyspnoea [Unknown]
  - Chest discomfort [Unknown]
  - Injection site reaction [Unknown]
